APPROVED DRUG PRODUCT: CEFADROXIL
Active Ingredient: CEFADROXIL/CEFADROXIL HEMIHYDRATE
Strength: EQ 500MG BASE
Dosage Form/Route: CAPSULE;ORAL
Application: A065282 | Product #001 | TE Code: AB
Applicant: TEVA PHARMACEUTICALS USA
Approved: Jan 20, 2006 | RLD: No | RS: Yes | Type: RX